FAERS Safety Report 9849453 (Version 1)
Quarter: 2014Q1

REPORT INFORMATION
  Report Type: Spontaneous
  Country: ES (occurrence: ES)
  Receive Date: 20140128
  Receipt Date: 20140128
  Transmission Date: 20141002
  Serious: Yes (Other)
  Sender: FDA-Public Use
  Company Number: PHHY2014ES009177

PATIENT
  Age: 73 Year
  Sex: Female

DRUGS (4)
  1. GLIVEC [Suspect]
     Indication: GASTROINTESTINAL NEOPLASM
     Dosage: 400 MG, QD
     Route: 048
     Dates: start: 20101228, end: 20110409
  2. GLIVEC [Suspect]
     Dosage: 400 MG, QD
     Route: 048
     Dates: start: 201105, end: 20130521
  3. GLIVEC [Suspect]
     Dosage: 400 MG, QD
     Route: 048
     Dates: start: 20130611, end: 20130708
  4. GLIVEC [Suspect]
     Dosage: 200 MG, QD
     Route: 048
     Dates: start: 20130709, end: 20131203

REACTIONS (4)
  - Liver disorder [Recovering/Resolving]
  - Liver function test abnormal [Not Recovered/Not Resolved]
  - Hepatic enzyme abnormal [Not Recovered/Not Resolved]
  - Drug intolerance [Unknown]
